FAERS Safety Report 6109354-1 (Version None)
Quarter: 2009Q1

REPORT INFORMATION
  Report Type: 
  Country: None (occurrence: None)
  Receive Date: 20090306
  Receipt Date: 20090306
  Transmission Date: 20090719
  Serious: Yes (Other)
  Sender: FDA-Public Use
  Company Number: None

PATIENT
  Age: 32 Year
  Sex: Female
  Weight: 78.9259 kg

DRUGS (2)
  1. AZITHROMYCIN [Suspect]
     Indication: BACTERIAL INFECTION
     Dosage: 1 TABLET DAILY DAILY PO
     Route: 048
     Dates: start: 20090228, end: 20090303
  2. AZITHROMYCIN [Suspect]
     Indication: COUGH
     Dosage: 1 TABLET DAILY DAILY PO
     Route: 048
     Dates: start: 20090228, end: 20090303

REACTIONS (12)
  - ABDOMINAL DISTENSION [None]
  - ABDOMINAL PAIN UPPER [None]
  - DEHYDRATION [None]
  - DIARRHOEA [None]
  - FLATULENCE [None]
  - HYPOPHAGIA [None]
  - LIP DRY [None]
  - NAUSEA [None]
  - POLYDIPSIA [None]
  - THIRST [None]
  - TINNITUS [None]
  - VOMITING [None]
